FAERS Safety Report 13180900 (Version 1)
Quarter: 2017Q1

REPORT INFORMATION
  Report Type: Spontaneous
  Country: US (occurrence: US)
  Receive Date: 20170202
  Receipt Date: 20170202
  Transmission Date: 20170428
  Serious: No
  Sender: FDA-Public Use
  Company Number: US-SMITH AND NEPHEW, INC-2016SMT00271

PATIENT
  Age: 51 Year
  Sex: Male
  Weight: 98.87 kg

DRUGS (4)
  1. REGRANEX [Suspect]
     Active Substance: BECAPLERMIN
     Indication: WOUND
     Dosage: UNK UNK, 1X/DAY
     Route: 061
     Dates: start: 20160319
  2. CLONIDINE. [Concomitant]
     Active Substance: CLONIDINE
  3. UNSPECIFIED MEDICATION(S) [Concomitant]
     Active Substance: UNSPECIFIED INGREDIENT
  4. LEVEMIR [Concomitant]
     Active Substance: INSULIN DETEMIR
     Dosage: 20 U, AS NEEDED
     Dates: start: 2006

REACTIONS (2)
  - Application site scab [Unknown]
  - Application site haemorrhage [Unknown]

NARRATIVE: CASE EVENT DATE: 201603
